FAERS Safety Report 14452924 (Version 1)
Quarter: 2018Q1

REPORT INFORMATION
  Report Type: Spontaneous
  Country: US (occurrence: US)
  Receive Date: 20180129
  Receipt Date: 20180129
  Transmission Date: 20180509
  Serious: No
  Sender: FDA-Public Use
  Company Number: US-TEVA-792244ACC

PATIENT
  Sex: Female

DRUGS (1)
  1. NADOLOL. [Suspect]
     Active Substance: NADOLOL
     Indication: HEART RATE INCREASED
     Dosage: 80 MILLIGRAM DAILY;
     Route: 048

REACTIONS (1)
  - Rash [Unknown]
